FAERS Safety Report 8440064-1 (Version None)
Quarter: 2012Q2

REPORT INFORMATION
  Report Type: 
  Country: None (occurrence: None)
  Receive Date: 20120615
  Receipt Date: 20120611
  Transmission Date: 20120825
  Serious: Yes (Hospitalization, Other)
  Sender: FDA-Public Use
  Company Number: US-ABBOTT-12P-163-0945169-00

PATIENT
  Sex: Male
  Weight: 117.13 kg

DRUGS (11)
  1. GLYBURIDE [Concomitant]
     Indication: DIABETES MELLITUS
  2. TOPROL-XL [Concomitant]
     Indication: HYPERTENSION
  3. CLOBETASOL PROPIONATE [Concomitant]
     Indication: PSORIASIS
  4. HUMIRA [Suspect]
     Indication: PSORIASIS
  5. HUMIRA [Suspect]
     Indication: RHEUMATOID ARTHRITIS
  6. MICARDIS [Concomitant]
     Indication: HYPERTENSION
  7. VYTORIN [Concomitant]
     Indication: BLOOD CHOLESTEROL INCREASED
  8. NORVASC [Concomitant]
     Indication: HYPERTENSION
  9. METFORMIN HCL [Concomitant]
     Indication: DIABETES MELLITUS
  10. COLCHICINE [Concomitant]
     Indication: GOUT
  11. HUMIRA [Suspect]
     Indication: PSORIATIC ARTHROPATHY
     Dates: start: 20070101, end: 20120603

REACTIONS (3)
  - GOUT [None]
  - DISORIENTATION [None]
  - CEREBROVASCULAR ACCIDENT [None]
